FAERS Safety Report 6534020-8 (Version None)
Quarter: 2010Q1

REPORT INFORMATION
  Report Type: 
  Country: None (occurrence: None)
  Receive Date: 20100112
  Receipt Date: 20100107
  Transmission Date: 20100710
  Serious: Yes (Death, Hospitalization, Other)
  Sender: FDA-Public Use
  Company Number: BR-ROCHE-678379

PATIENT
  Sex: Female
  Weight: 75 kg

DRUGS (6)
  1. ROCEPHIN [Suspect]
     Indication: PNEUMONIA
     Route: 065
     Dates: start: 20090101, end: 20090101
  2. ROCEPHIN [Suspect]
     Route: 065
     Dates: start: 20090101, end: 20090101
  3. ROCEPHIN [Suspect]
     Dosage: ROUTE: INTRAVENOUS
     Route: 065
     Dates: start: 20091120, end: 20091215
  4. CIPRO [Suspect]
     Indication: PNEUMONIA
     Route: 050
     Dates: start: 20090101, end: 20090101
  5. NIMODIPINE [Concomitant]
     Dosage: START DATE: 1994 OR 1995
     Route: 048
     Dates: start: 19940101
  6. PHENYTOIN [Concomitant]
     Indication: EPILEPSY
     Dosage: EPILEPSY DUE TO ALZHEIMER'S DISEASE
     Route: 048
     Dates: start: 19950101

REACTIONS (5)
  - DRUG INEFFECTIVE [None]
  - INFECTION [None]
  - MEDICATION ERROR [None]
  - PNEUMONIA [None]
  - PULMONARY OEDEMA [None]
